FAERS Safety Report 25378613 (Version 1)
Quarter: 2025Q2

REPORT INFORMATION
  Report Type: Spontaneous
  Country: US (occurrence: US)
  Receive Date: 20250530
  Receipt Date: 20250530
  Transmission Date: 20250717
  Serious: Yes (Other)
  Sender: TAKEDA
  Company Number: US-TAKEDA-2025TUS050254

PATIENT
  Age: 70 Year
  Sex: Female

DRUGS (1)
  1. HUMAN IMMUNOGLOBULIN G [Suspect]
     Active Substance: HUMAN IMMUNOGLOBULIN G
     Indication: Guillain-Barre syndrome
     Dosage: 35 GRAM, QD

REACTIONS (4)
  - Neutropenia [Unknown]
  - Leukopenia [Unknown]
  - Anaemia macrocytic [Unknown]
  - Thrombocytopenia [Unknown]
